FAERS Safety Report 23051871 (Version 1)
Quarter: 2023Q4

REPORT INFORMATION
  Report Type: Spontaneous
  Country: HR (occurrence: HR)
  Receive Date: 20231010
  Receipt Date: 20231010
  Transmission Date: 20240109
  Serious: Yes (Other)
  Sender: FDA-Public Use
  Company Number: HR-BAYER-2023A140040

PATIENT
  Sex: Male

DRUGS (10)
  1. XOFIGO [Suspect]
     Active Substance: RADIUM RA-223 DICHLORIDE
     Indication: Hormone-dependent prostate cancer
     Dosage: UNK
     Dates: start: 201709, end: 201709
  2. XOFIGO [Suspect]
     Active Substance: RADIUM RA-223 DICHLORIDE
     Indication: Hormone-dependent prostate cancer
     Dosage: UNK
     Dates: start: 201710, end: 201710
  3. XOFIGO [Suspect]
     Active Substance: RADIUM RA-223 DICHLORIDE
     Indication: Hormone-dependent prostate cancer
     Dosage: UNK
     Dates: start: 201711, end: 201711
  4. XOFIGO [Suspect]
     Active Substance: RADIUM RA-223 DICHLORIDE
     Indication: Hormone-dependent prostate cancer
     Dosage: UNK
     Dates: start: 201712, end: 201712
  5. XOFIGO [Suspect]
     Active Substance: RADIUM RA-223 DICHLORIDE
     Indication: Hormone-dependent prostate cancer
     Dosage: UNK
     Dates: start: 201801, end: 201801
  6. XOFIGO [Suspect]
     Active Substance: RADIUM RA-223 DICHLORIDE
     Indication: Hormone-dependent prostate cancer
     Dosage: UNK
     Dates: start: 201802, end: 201802
  7. DOCETAXEL [Concomitant]
     Active Substance: DOCETAXEL
     Dosage: 75 MG/M2 EVERY 3 WEEKS
     Dates: start: 202306
  8. TESTOSTERONE [Concomitant]
     Active Substance: TESTOSTERONE
     Dosage: 0.9 NMOL/L
  9. ZOLEDRONIC ACID [Concomitant]
     Active Substance: ZOLEDRONIC ACID
  10. AMITRIPTYLINE HYDROCHLORIDE [Concomitant]
     Active Substance: AMITRIPTYLINE HYDROCHLORIDE

REACTIONS (2)
  - Metastases to lung [None]
  - Prostatic specific antigen increased [None]

NARRATIVE: CASE EVENT DATE: 20180601
